FAERS Safety Report 5631130-4 (Version None)
Quarter: 2008Q1

REPORT INFORMATION
  Report Type: 
  Country: None (occurrence: None)
  Receive Date: 20080219
  Receipt Date: 20080214
  Transmission Date: 20080703
  Serious: Yes (Life-Threatening, Hospitalization)
  Sender: FDA-Public Use
  Company Number: IT-BOEHRINGER INGELHEIM GMBH, GERMANY-2008-BP-01807YA

PATIENT
  Sex: Male

DRUGS (9)
  1. OMNIC CAPSULES [Suspect]
     Indication: BENIGN PROSTATIC HYPERPLASIA
     Route: 048
     Dates: start: 20080111, end: 20080113
  2. CIPROXIN [Suspect]
     Indication: URINARY RETENTION
     Route: 048
     Dates: start: 20080109, end: 20080112
  3. EFFERALGAN [Suspect]
     Indication: BACK PAIN
     Route: 048
     Dates: start: 20080110, end: 20080111
  4. EFFERALGAN [Suspect]
     Route: 048
     Dates: start: 20080112, end: 20080113
  5. ESOMEPRAZOLE MAGNESIUM [Concomitant]
     Route: 042
     Dates: start: 20080110, end: 20080114
  6. ESOMEPRAZOLE MAGNESIUM [Concomitant]
     Route: 048
     Dates: start: 20080115
  7. FUROSEMIDE [Concomitant]
     Route: 042
     Dates: start: 20080110, end: 20080113
  8. FUROSEMIDE [Concomitant]
     Route: 048
     Dates: start: 20080114
  9. POTASSIUM CANRENOATE [Concomitant]
     Route: 042
     Dates: start: 20080110, end: 20080113

REACTIONS (1)
  - STEVENS-JOHNSON SYNDROME [None]
